FAERS Safety Report 6651633-3 (Version None)
Quarter: 2010Q1

REPORT INFORMATION
  Report Type: 
  Country: None (occurrence: None)
  Receive Date: 20100325
  Receipt Date: 20100319
  Transmission Date: 20100710
  Serious: Yes (Hospitalization)
  Sender: FDA-Public Use
  Company Number: TR-ABBOTT-10P-161-0633383-00

PATIENT
  Age: 16 Year
  Sex: Male

DRUGS (1)
  1. TARKA [Suspect]
     Indication: DRUG USE FOR UNKNOWN INDICATION
     Dosage: 2/180MG-TOOK 7 TABLETS
     Dates: start: 20100316, end: 20100316

REACTIONS (2)
  - HYPOTENSION [None]
  - SUICIDE ATTEMPT [None]
